FAERS Safety Report 9231067 (Version 2)
Quarter: 2013Q2

REPORT INFORMATION
  Report Type: Spontaneous
  Country: TR (occurrence: TR)
  Receive Date: 20130415
  Receipt Date: 20130517
  Transmission Date: 20140414
  Serious: Yes (Death, Hospitalization, Other)
  Sender: FDA-Public Use
  Company Number: TR-NOVOPROD-374994

PATIENT
  Sex: Male

DRUGS (2)
  1. NOVORAPID FLEXPEN [Suspect]
     Indication: GESTATIONAL DIABETES
     Dosage: 45 U, QD
     Route: 064
     Dates: start: 20120829, end: 20121201
  2. ALFAMET [Concomitant]
     Indication: HYPERTENSION
     Dosage: UNK
     Route: 064
     Dates: start: 201210

REACTIONS (3)
  - Gastrointestinal disorder [Fatal]
  - Premature baby [Unknown]
  - Foetal exposure during pregnancy [Recovered/Resolved]
